FAERS Safety Report 17720025 (Version 3)
Quarter: 2020Q4

REPORT INFORMATION
  Report Type: Spontaneous
  Country: US (occurrence: US)
  Receive Date: 20200428
  Receipt Date: 20201210
  Transmission Date: 20210113
  Serious: Yes (Other)
  Sender: FDA-Public Use
  Company Number: US-PURDUE PHARMA-USA-2020-0152073

PATIENT
  Sex: Female

DRUGS (4)
  1. OXYCONTIN [Suspect]
     Active Substance: OXYCODONE HYDROCHLORIDE
     Indication: PAIN
     Dosage: 30 MG, BID, 1 TABLET
     Route: 048
     Dates: start: 2004, end: 2016
  2. DARVOCET [Suspect]
     Active Substance: ACETAMINOPHEN\PROPOXYPHENE HYDROCHLORIDE
     Indication: PAIN
     Dosage: 100 MG, ONE, ONE TO TWO EVERY SIX HOURS, STOPPED A MONTH OR TWO
     Route: 048
     Dates: start: 2004
  3. PROLIA [Suspect]
     Active Substance: DENOSUMAB
     Indication: OSTEOPOROSIS
     Dosage: 1 INJECTION, ONCE EVERY SIX MONTHS
     Route: 065
     Dates: start: 2019
  4. PERCOCET                           /00446701/ [Suspect]
     Active Substance: ACETAMINOPHEN\OXYCODONE HYDROCHLORIDE\OXYCODONE TEREPHTHALATE
     Indication: PAIN
     Dosage: 1 TABLET, BID, 5 MG, 10 MG WITH LESS TYLENOL, THREE TO FOUR DAILY
     Route: 048
     Dates: start: 2006, end: 20200525

REACTIONS (8)
  - Tooth loss [Recovered/Resolved]
  - Withdrawal syndrome [Unknown]
  - Nausea [Unknown]
  - Back injury [Not Recovered/Not Resolved]
  - Weight decreased [Not Recovered/Not Resolved]
  - Osteoporosis [Not Recovered/Not Resolved]
  - Radiculopathy [Not Recovered/Not Resolved]
  - Memory impairment [Not Recovered/Not Resolved]

NARRATIVE: CASE EVENT DATE: 2005
